FAERS Safety Report 10775568 (Version 2)
Quarter: 2015Q1

REPORT INFORMATION
  Report Type: Spontaneous
  Country: DE (occurrence: DE)
  Receive Date: 20150209
  Receipt Date: 20150317
  Transmission Date: 20150721
  Serious: Yes (Death)
  Sender: FDA-Public Use
  Company Number: DE-TEVA-537629GER

PATIENT
  Age: 71 Year
  Sex: Female
  Weight: 44 kg

DRUGS (2)
  1. DOXYLAMINE [Suspect]
     Active Substance: DOXYLAMINE
     Indication: COMPLETED SUICIDE
     Dosage: INGESTED DRUG DOSE OF 2.6G WAS CALCULATED ACCORDING TO THE VOLUME OF DISTRIBUTION OF THE DRUG
     Route: 065
  2. PANTOPRAZOLE [Concomitant]
     Active Substance: PANTOPRAZOLE SODIUM
     Dosage: INGESTED DRUG DOSE OF 2.6 MG/L

REACTIONS (6)
  - Toxicity to various agents [Fatal]
  - Fall [Fatal]
  - Overdose [Unknown]
  - Completed suicide [Fatal]
  - Sedation [Fatal]
  - Haematoma [Fatal]
